FAERS Safety Report 8699071 (Version 4)
Quarter: 2012Q4

REPORT INFORMATION
  Report Type: 
  Country: JP (occurrence: JP)
  Receive Date: 20120802
  Receipt Date: 20120926
  Transmission Date: 20130627
  Serious: Yes (Life-Threatening, Hospitalization, Other)
  Sender: FDA-Public Use
  Company Number: JP-PFIZER INC-2012184491

PATIENT
  Age: 82 Year
  Sex: Male

DRUGS (5)
  1. LYRICA [Suspect]
     Dosage: UNK
     Route: 048
     Dates: start: 20120725, end: 2012
  2. BLOPRESS [Suspect]
     Indication: HYPERTENSION
  3. BAYASPIRIN [Suspect]
     Dosage: UNK
     Dates: end: 20120726
  4. ALOSITOL [Suspect]
     Indication: HYPERURICAEMIA
  5. EVIPROSTAT [Suspect]
     Indication: BENIGN PROSTATIC HYPERPLASIA

REACTIONS (2)
  - Hepatic function abnormal [Recovering/Resolving]
  - Hepatitis viral [Recovering/Resolving]
